FAERS Safety Report 10100826 (Version 1)
Quarter: 2014Q2

REPORT INFORMATION
  Report Type: Spontaneous
  Country: CA (occurrence: CA)
  Receive Date: 20140423
  Receipt Date: 20140423
  Transmission Date: 20141212
  Serious: Yes (Death, Hospitalization, Other)
  Sender: FDA-Public Use
  Company Number: CA-B.I. PHARMACEUTICALS,INC./RIDGEFIELD-2014-BI-18285CN

PATIENT
  Age: 61 Year
  Sex: Female

DRUGS (1)
  1. PRADAXA [Suspect]
     Indication: ATRIAL FIBRILLATION
     Route: 065

REACTIONS (9)
  - Haemorrhage [Fatal]
  - Mouth haemorrhage [Unknown]
  - Intestinal haemorrhage [Unknown]
  - Cerebral haemorrhage [Unknown]
  - Incoherent [Unknown]
  - Coma [Unknown]
  - Condition aggravated [Unknown]
  - Influenza [Unknown]
  - Rectal haemorrhage [Unknown]
